FAERS Safety Report 13625553 (Version 1)
Quarter: 2017Q2

REPORT INFORMATION
  Report Type: Spontaneous
  Country: BR (occurrence: BR)
  Receive Date: 20170608
  Receipt Date: 20170608
  Transmission Date: 20170830
  Serious: Yes (Other)
  Sender: FDA-Public Use
  Company Number: PHHY2017BR079084

PATIENT
  Sex: Female
  Weight: 78 kg

DRUGS (1)
  1. ESTALIS [Suspect]
     Active Substance: ESTRADIOL\NORETHINDRONE ACETATE
     Indication: HORMONE REPLACEMENT THERAPY
     Dosage: 1 DF (1 PATCH A DAY 2 TIMES A WEEK)
     Route: 062

REACTIONS (3)
  - Feeling hot [Recovering/Resolving]
  - Blood pressure increased [Recovering/Resolving]
  - Breast mass [Not Recovered/Not Resolved]
